FAERS Safety Report 9858160 (Version 1)
Quarter: 2014Q1

REPORT INFORMATION
  Report Type: Spontaneous
  Country: US (occurrence: None)
  Receive Date: 20140129
  Receipt Date: 20140129
  Transmission Date: 20141002
  Serious: Yes (Hospitalization)
  Sender: FDA-Public Use
  Company Number: None

PATIENT
  Age: 65 Year
  Sex: Male
  Weight: 81.8 kg

DRUGS (2)
  1. LISINOPRIL?10 MG [Suspect]
     Indication: HYPERTENSION
     Route: 048
     Dates: start: 201309
  2. LISINOPRIL?10 MG [Suspect]
     Indication: MITRAL VALVE DISEASE
     Route: 048
     Dates: start: 201309

REACTIONS (6)
  - Cough [None]
  - Atrial fibrillation [None]
  - Fatigue [None]
  - Asthenia [None]
  - Pallor [None]
  - Insomnia [None]
